FAERS Safety Report 6689653-5 (Version None)
Quarter: 2010Q2

REPORT INFORMATION
  Report Type: 
  Country: None (occurrence: None)
  Receive Date: 20100421
  Receipt Date: 20100413
  Transmission Date: 20101027
  Serious: No
  Sender: FDA-Public Use
  Company Number: 2009BI015492

PATIENT
  Age: 48 Year
  Sex: Female

DRUGS (1)
  1. TYSABRI [Suspect]
     Indication: MULTIPLE SCLEROSIS
     Route: 042
     Dates: start: 20080604

REACTIONS (7)
  - ASTHENIA [None]
  - CLAVICLE FRACTURE [None]
  - COGNITIVE DISORDER [None]
  - FALL [None]
  - PAIN [None]
  - SINUS HEADACHE [None]
  - TIBIA FRACTURE [None]
